FAERS Safety Report 9286792 (Version 3)
Quarter: 2013Q2

REPORT INFORMATION
  Report Type: Spontaneous
  Country: US (occurrence: US)
  Receive Date: 20130513
  Receipt Date: 20130517
  Transmission Date: 20140414
  Serious: Yes (Hospitalization)
  Sender: FDA-Public Use
  Company Number: US-GILEAD-2013-0074525

PATIENT
  Sex: Female

DRUGS (3)
  1. LETAIRIS [Suspect]
     Indication: COR PULMONALE CHRONIC
     Dosage: 5 MG, QD
     Dates: start: 20070809
  2. REMODULIN [Concomitant]
  3. COUMADIN                           /00014802/ [Concomitant]

REACTIONS (7)
  - Blood magnesium decreased [Unknown]
  - Fluid retention [Unknown]
  - Local swelling [Unknown]
  - Chest pain [Unknown]
  - Oedema [Unknown]
  - Dizziness [Unknown]
  - Fluid retention [Unknown]
